FAERS Safety Report 17571776 (Version 1)
Quarter: 2020Q1

REPORT INFORMATION
  Report Type: Spontaneous
  Country: FR (occurrence: FR)
  Receive Date: 20200323
  Receipt Date: 20200323
  Transmission Date: 20200409
  Serious: Yes (Hospitalization, Other)
  Sender: FDA-Public Use
  Company Number: FR-MYLANLABS-2020M1030037

PATIENT
  Age: 21 Year
  Sex: Female
  Weight: 60 kg

DRUGS (6)
  1. KETOPROFEN. [Suspect]
     Active Substance: KETOPROFEN
     Indication: GAIT DISTURBANCE
     Dosage: UNK
     Route: 048
     Dates: start: 201810, end: 201811
  2. BENEPALI [Suspect]
     Active Substance: ETANERCEPT
     Indication: SPONDYLITIS
     Dosage: 1 DOSAGE FORM, QW
     Route: 058
     Dates: start: 201901, end: 201908
  3. ETHINYLESTRADIOL/LEVONORGESTREL [Suspect]
     Active Substance: ETHINYL ESTRADIOL\LEVONORGESTREL
     Indication: ORAL CONTRACEPTION
     Dosage: 21 DOSAGE FORM, MONTHLY
     Route: 048
     Dates: start: 2013, end: 202001
  4. METHOTREXATE. [Suspect]
     Active Substance: METHOTREXATE
     Indication: SPONDYLITIS
     Dosage: 10 MILLIGRAM, QW
     Route: 048
     Dates: start: 201811
  5. AMGEVITA [Suspect]
     Active Substance: ADALIMUMAB
     Indication: SPONDYLITIS
     Dosage: 1 DOSAGE FORM, BIMONTHLY
     Route: 058
     Dates: start: 201908
  6. NAPROXEN. [Suspect]
     Active Substance: NAPROXEN
     Indication: GAIT DISTURBANCE
     Dosage: UNK
     Route: 048
     Dates: start: 201808, end: 201810

REACTIONS (1)
  - Hepatic adenoma [Recovering/Resolving]

NARRATIVE: CASE EVENT DATE: 20191122
